FAERS Safety Report 16162501 (Version 1)
Quarter: 2019Q2

REPORT INFORMATION
  Report Type: Spontaneous
  Country: US (occurrence: US)
  Receive Date: 20190302
  Receipt Date: 20190302
  Transmission Date: 20190711
  Serious: No
  Sender: FDA-Public Use
  Company Number: None

PATIENT
  Age: 62 Year
  Sex: Male

DRUGS (4)
  1. ABIRATERONE 250MG TAB [Suspect]
     Active Substance: ABIRATERONE
     Indication: PROSTATE CANCER
     Route: 048
     Dates: start: 201712
  2. PREDNISONE. [Concomitant]
     Active Substance: PREDNISONE
  3. ZINC. [Concomitant]
     Active Substance: ZINC
  4. IBUPROFEN. [Concomitant]
     Active Substance: IBUPROFEN

REACTIONS (2)
  - Influenza [None]
  - Therapy cessation [None]

NARRATIVE: CASE EVENT DATE: 20190204
